FAERS Safety Report 8256223-7 (Version None)
Quarter: 2012Q2

REPORT INFORMATION
  Report Type: 
  Country: None (occurrence: None)
  Receive Date: 20120403
  Receipt Date: 20120328
  Transmission Date: 20120825
  Serious: Yes (Other)
  Sender: FDA-Public Use
  Company Number: US-ROCHE-793114

PATIENT
  Sex: Female
  Weight: 72.64 kg

DRUGS (4)
  1. ACCUTANE [Suspect]
     Route: 065
     Dates: start: 19900101, end: 19911231
  2. ACCUTANE [Suspect]
     Indication: ACNE
     Route: 065
     Dates: start: 19830101, end: 19840101
  3. LEXAPRO [Concomitant]
  4. TOPAMAX [Concomitant]

REACTIONS (5)
  - IRRITABLE BOWEL SYNDROME [None]
  - INFLAMMATORY BOWEL DISEASE [None]
  - CROHN'S DISEASE [None]
  - ANXIETY [None]
  - DIVERTICULITIS [None]
